FAERS Safety Report 7726674-5 (Version None)
Quarter: 2011Q3

REPORT INFORMATION
  Report Type: 
  Country: None (occurrence: None)
  Receive Date: 20110902
  Receipt Date: 20110818
  Transmission Date: 20111222
  Serious: Yes (Other)
  Sender: FDA-Public Use
  Company Number: ZA-JNJFOC-20110808996

PATIENT
  Sex: Female

DRUGS (1)
  1. BENYLIN [Suspect]
     Indication: ACCIDENTAL DRUG INTAKE BY CHILD
     Route: 048
     Dates: start: 20110818, end: 20110818

REACTIONS (7)
  - ABNORMAL BEHAVIOUR [None]
  - ACCIDENTAL DRUG INTAKE BY CHILD [None]
  - WRONG DRUG ADMINISTERED [None]
  - DIZZINESS [None]
  - SOMNOLENCE [None]
  - CRYING [None]
  - OVERDOSE [None]
